FAERS Safety Report 12443997 (Version 1)
Quarter: 2016Q2

REPORT INFORMATION
  Report Type: Spontaneous
  Country: US (occurrence: US)
  Receive Date: 20160607
  Receipt Date: 20160607
  Transmission Date: 20160815
  Serious: No
  Sender: FDA-Public Use
  Company Number: US-SA-2016SA099863

PATIENT
  Age: 79 Year
  Sex: Female

DRUGS (2)
  1. SOLOSTAR [Concomitant]
     Active Substance: DEVICE
     Route: 065
     Dates: start: 201605
  2. TOUJEO [Suspect]
     Active Substance: INSULIN GLARGINE
     Indication: TYPE 2 DIABETES MELLITUS
     Dosage: DOSE:53 UNIT(S)
     Route: 065
     Dates: start: 201605

REACTIONS (6)
  - Neck pain [Unknown]
  - Headache [Unknown]
  - Decreased appetite [Unknown]
  - Blood glucose increased [Unknown]
  - Back pain [Unknown]
  - Burning sensation [Unknown]

NARRATIVE: CASE EVENT DATE: 20160521
